FAERS Safety Report 5735564-9 (Version None)
Quarter: 2008Q2

REPORT INFORMATION
  Report Type: 
  Country: None (occurrence: None)
  Receive Date: 20080512
  Receipt Date: 20071129
  Transmission Date: 20081010
  Serious: No
  Sender: FDA-Public Use
  Company Number: US-BOEHRINGER INGELHEIM GMBH, GERMANY-2006-BP-11238BP

PATIENT
  Sex: Male
  Weight: 93 kg

DRUGS (19)
  1. MIRAPEX [Suspect]
     Indication: PARKINSON'S DISEASE
     Route: 048
     Dates: start: 20040128, end: 20050906
  2. MIRAPEX [Suspect]
     Indication: RESTLESS LEGS SYNDROME
  3. CARBIDOPA AND LEVODOPA [Concomitant]
     Indication: PARKINSON'S DISEASE
     Dates: start: 20050501
  4. NEXIUM [Concomitant]
     Indication: GASTROOESOPHAGEAL REFLUX DISEASE
  5. LEXAPRO [Concomitant]
     Indication: DEPRESSION
  6. SINEMET [Concomitant]
     Indication: PARKINSON'S DISEASE
  7. REQUIP [Concomitant]
     Indication: PARKINSON'S DISEASE
     Dates: start: 20050830
  8. CLARINEX [Concomitant]
     Indication: HYPERSENSITIVITY
  9. NASONEX [Concomitant]
     Indication: HYPERSENSITIVITY
  10. CLONAZEPAM [Concomitant]
     Indication: SLEEP DISORDER
  11. STALEVO 100 [Concomitant]
     Indication: PARKINSON'S DISEASE
  12. NEUPRO [Concomitant]
     Indication: PARKINSON'S DISEASE
  13. SAUCTURA [Concomitant]
     Indication: URINARY TRACT DISORDER
  14. PERMAX [Concomitant]
     Indication: PARKINSON'S DISEASE
  15. SYMMETREL [Concomitant]
     Indication: PARKINSON'S DISEASE
  16. PROVIGIL [Concomitant]
     Dates: start: 20050706
  17. LUNESTA [Concomitant]
     Dates: start: 20050808
  18. METOPROLOL TARTRATE [Concomitant]
     Dates: start: 20050601
  19. PRIMIDONE [Concomitant]
     Dates: start: 20040601

REACTIONS (4)
  - EMOTIONAL DISTRESS [None]
  - HYPERSEXUALITY [None]
  - OBSESSIVE-COMPULSIVE DISORDER [None]
  - PATHOLOGICAL GAMBLING [None]
